FAERS Safety Report 12996808 (Version 1)
Quarter: 2016Q4

REPORT INFORMATION
  Report Type: Spontaneous
  Country: US (occurrence: US)
  Receive Date: 20161205
  Receipt Date: 20161205
  Transmission Date: 20170207
  Serious: No
  Sender: FDA-Public Use
  Company Number: US-ASTRAZENECA-2016SF24598

PATIENT
  Age: 24790 Day
  Sex: Female
  Weight: 124.7 kg

DRUGS (1)
  1. BYDUREON [Suspect]
     Active Substance: EXENATIDE
     Indication: TYPE 2 DIABETES MELLITUS
     Route: 065
     Dates: start: 20161114

REACTIONS (2)
  - Intentional product misuse [Unknown]
  - Head discomfort [Unknown]

NARRATIVE: CASE EVENT DATE: 20161121
